FAERS Safety Report 9110444 (Version 1)
Quarter: 2013Q1

REPORT INFORMATION
  Report Type: Spontaneous
  Country: US (occurrence: US)
  Receive Date: 20130219
  Receipt Date: 20130219
  Transmission Date: 20140127
  Serious: Yes (Other)
  Sender: FDA-Public Use
  Company Number: US-BRACCO-007745

PATIENT
  Sex: Female

DRUGS (4)
  1. ISOVUE 300 [Suspect]
     Indication: PAIN
     Dosage: APPROXIMATELY 3 ML
     Route: 037
     Dates: start: 20120322, end: 20120322
  2. ISOVUE 300 [Suspect]
     Indication: SPINAL MYELOGRAM
     Dosage: APPROXIMATELY 3 ML
     Route: 037
     Dates: start: 20120322, end: 20120322
  3. ADVAIR [Concomitant]
  4. ALL OTHER THERAPEUTIC PRODUCTS [Concomitant]

REACTIONS (1)
  - Convulsion [Recovered/Resolved]
